FAERS Safety Report 19108200 (Version 4)
Quarter: 2021Q2

REPORT INFORMATION
  Report Type: Spontaneous
  Country: US (occurrence: US)
  Receive Date: 20210408
  Receipt Date: 20210616
  Transmission Date: 20210717
  Serious: Yes (Other)
  Sender: FDA-Public Use
  Company Number: US-SA-2021SA098406

PATIENT
  Age: 73 Year
  Sex: Female

DRUGS (12)
  1. VUMERITY [Concomitant]
     Active Substance: DIROXIMEL FUMARATE
  2. PREVACID [Concomitant]
     Active Substance: LANSOPRAZOLE
     Dosage: 2MG
  3. DUPIXENT [Suspect]
     Active Substance: DUPILUMAB
     Indication: MULTIPLE SCLEROSIS
  4. ALEVE [Concomitant]
     Active Substance: NAPROXEN SODIUM
     Dosage: 2MG
  5. DUPIXENT [Suspect]
     Active Substance: DUPILUMAB
     Indication: NASAL POLYPS
  6. VUMERITY [Concomitant]
     Active Substance: DIROXIMEL FUMARATE
     Dosage: UNK
  7. TYLENOL [Concomitant]
     Active Substance: ACETAMINOPHEN
     Indication: ARTHRITIS
  8. DUPIXENT [Suspect]
     Active Substance: DUPILUMAB
     Indication: CHRONIC RHINOSINUSITIS WITH NASAL POLYPS
     Dosage: 300 MG, QOW
     Route: 058
     Dates: start: 202102
  9. ANTACID [ALUMINIUM HYDROXIDE;MAGNESIUM HYDROXIDE;SIMETICONE] [Concomitant]
  10. COPAXONE [Concomitant]
     Active Substance: GLATIRAMER ACETATE
     Dosage: UNK
  11. VITAMIN D3 [Concomitant]
     Active Substance: CHOLECALCIFEROL
  12. CENTRUM SILVER [ASCORBIC ACID;CALCIUM;MINERALS NOS;RETINOL;TOCOPHERYL [Concomitant]

REACTIONS (9)
  - Eye pruritus [Not Recovered/Not Resolved]
  - Abdominal pain upper [Not Recovered/Not Resolved]
  - Arthralgia [Not Recovered/Not Resolved]
  - Dysphagia [Unknown]
  - Product use in unapproved indication [Unknown]
  - Multiple sclerosis [Not Recovered/Not Resolved]
  - Toothache [Not Recovered/Not Resolved]
  - Condition aggravated [Recovering/Resolving]
  - Dry eye [Not Recovered/Not Resolved]

NARRATIVE: CASE EVENT DATE: 202103
